FAERS Safety Report 16646306 (Version 1)
Quarter: 2019Q3

REPORT INFORMATION
  Report Type: Spontaneous
  Country: FR (occurrence: FR)
  Receive Date: 20190730
  Receipt Date: 20190730
  Transmission Date: 20191004
  Serious: Yes (Life-Threatening, Hospitalization)
  Sender: FDA-Public Use
  Company Number: FR-ROCHE-2363562

PATIENT
  Age: 68 Year
  Sex: Male
  Weight: 74 kg

DRUGS (11)
  1. CYCLOPHOSPHAMIDE. [Suspect]
     Active Substance: CYCLOPHOSPHAMIDE
     Indication: PERIPHERAL T-CELL LYMPHOMA UNSPECIFIED
     Route: 042
     Dates: start: 20140707, end: 20140903
  2. ALKERAN [Suspect]
     Active Substance: MELPHALAN
     Indication: AUTOLOGOUS HAEMATOPOIETIC STEM CELL TRANSPLANT
     Route: 042
     Dates: start: 20140929, end: 20140929
  3. MABTHERA [Suspect]
     Active Substance: RITUXIMAB
     Indication: PERIPHERAL T-CELL LYMPHOMA UNSPECIFIED
     Route: 041
     Dates: start: 20140707, end: 20140903
  4. BICNU [Suspect]
     Active Substance: CARMUSTINE
     Indication: AUTOLOGOUS HAEMATOPOIETIC STEM CELL TRANSPLANT
     Route: 042
     Dates: start: 20140924, end: 20140924
  5. CISPLATINE [Suspect]
     Active Substance: CISPLATIN
     Indication: BLADDER CANCER
     Route: 042
     Dates: start: 20100216, end: 20100323
  6. VINCRISTINE SULFATE. [Suspect]
     Active Substance: VINCRISTINE SULFATE
     Indication: PERIPHERAL T-CELL LYMPHOMA UNSPECIFIED
     Route: 042
     Dates: start: 20140707, end: 20140903
  7. ETOPOPHOS [Suspect]
     Active Substance: ETOPOSIDE PHOSPHATE
     Indication: AUTOLOGOUS HAEMATOPOIETIC STEM CELL TRANSPLANT
     Route: 042
     Dates: start: 20140925, end: 20140928
  8. DOXORUBICINE [DOXORUBICIN] [Suspect]
     Active Substance: DOXORUBICIN
     Indication: PERIPHERAL T-CELL LYMPHOMA UNSPECIFIED
     Route: 042
     Dates: start: 20140707, end: 20140903
  9. CISPLATINE [Suspect]
     Active Substance: CISPLATIN
     Indication: BLADDER CANCER
     Route: 042
     Dates: start: 20090817, end: 20091130
  10. ETOPOSIDE. [Suspect]
     Active Substance: ETOPOSIDE
     Indication: BLADDER CANCER
     Route: 042
     Dates: start: 20090817, end: 20091202
  11. CYTARABINE. [Suspect]
     Active Substance: CYTARABINE
     Indication: AUTOLOGOUS HAEMATOPOIETIC STEM CELL TRANSPLANT
     Route: 042
     Dates: start: 20140925, end: 20140928

REACTIONS (2)
  - Myelodysplastic syndrome [Not Recovered/Not Resolved]
  - Second primary malignancy [Not Recovered/Not Resolved]

NARRATIVE: CASE EVENT DATE: 20181221
